FAERS Safety Report 24618502 (Version 1)
Quarter: 2024Q4

REPORT INFORMATION
  Report Type: Spontaneous
  Country: US (occurrence: None)
  Receive Date: 20241113
  Receipt Date: 20241113
  Transmission Date: 20250115
  Serious: No
  Sender: Public
  Company Number: None

PATIENT
  Age: 74 Year
  Sex: Male
  Weight: 114 kg

DRUGS (1)
  1. VANCOMYCIN HYDROCHLORIDE [Suspect]
     Active Substance: VANCOMYCIN HYDROCHLORIDE
     Indication: Cellulitis
     Dosage: OTHER FREQUENCY : OTHER;?
     Route: 042
     Dates: start: 20240919, end: 20240920

REACTIONS (2)
  - Chest pain [None]
  - Palpitations [None]

NARRATIVE: CASE EVENT DATE: 20240923
